FAERS Safety Report 7493277-X (Version None)
Quarter: 2011Q2

REPORT INFORMATION
  Report Type: 
  Country: None (occurrence: None)
  Receive Date: 20110520
  Receipt Date: 20110517
  Transmission Date: 20111010
  Serious: Yes (Other)
  Sender: FDA-Public Use
  Company Number: US-AMGEN-USASP2011023188

PATIENT
  Sex: Male
  Weight: 77.823 kg

DRUGS (3)
  1. NPLATE [Suspect]
     Indication: IDIOPATHIC THROMBOCYTOPENIC PURPURA
     Dosage: 5.5 A?G/KG, QWK
     Route: 058
     Dates: start: 20101202, end: 20110224
  2. IMMUNOGLOBULINS [Concomitant]
  3. CORTICOSTEROIDS [Concomitant]

REACTIONS (1)
  - MYELODYSPLASTIC SYNDROME [None]
